FAERS Safety Report 11402284 (Version 1)
Quarter: 2015Q3

REPORT INFORMATION
  Report Type: Spontaneous
  Country: US (occurrence: US)
  Receive Date: 20150821
  Receipt Date: 20150821
  Transmission Date: 20151125
  Serious: No
  Sender: FDA-Public Use
  Company Number: US-ROCHE-1292166

PATIENT
  Sex: Female

DRUGS (4)
  1. RIBAVIRIN. [Suspect]
     Active Substance: RIBAVIRIN
     Indication: CHRONIC HEPATITIS C
     Route: 065
     Dates: start: 20130912
  2. SPIRONOLACTONE. [Concomitant]
     Active Substance: SPIRONOLACTONE
  3. PEGASYS [Suspect]
     Active Substance: PEGINTERFERON ALFA-2A
     Indication: CHRONIC HEPATITIS C
     Route: 065
     Dates: start: 20130912
  4. LASIX [Concomitant]
     Active Substance: FUROSEMIDE

REACTIONS (8)
  - Muscle spasms [Unknown]
  - Oedema [Unknown]
  - Fluid retention [Unknown]
  - Memory impairment [Unknown]
  - Abdominal distension [Unknown]
  - Pain [Unknown]
  - Full blood count decreased [Unknown]
  - Disturbance in attention [Unknown]
